FAERS Safety Report 4335256-7 (Version None)
Quarter: 2004Q2

REPORT INFORMATION
  Report Type: 
  Country: None (occurrence: None)
  Receive Date: 20040408
  Receipt Date: 20040317
  Transmission Date: 20050107
  Serious: Yes (Other)
  Sender: FDA-Public Use
  Company Number: JP-MERCK-0403USA01684

PATIENT
  Age: 71 Year
  Sex: Male

DRUGS (7)
  1. PREDONINE [Concomitant]
     Route: 048
     Dates: start: 20030405
  2. MUCOSTA [Concomitant]
     Route: 048
     Dates: start: 20030325
  3. VITAMIN B COMPLEX [Concomitant]
     Route: 048
     Dates: start: 20030325, end: 20030430
  4. PEPCID [Suspect]
     Indication: REFLUX OESOPHAGITIS
     Route: 048
     Dates: start: 20031008, end: 20031216
  5. PEPCID [Suspect]
     Route: 048
     Dates: start: 20030325, end: 20030329
  6. LOXOPROFEN SODIUM [Concomitant]
     Route: 048
     Dates: start: 20030325
  7. ADALAT [Concomitant]
     Route: 048
     Dates: start: 20040113

REACTIONS (3)
  - ARTHRALGIA [None]
  - BLOOD CREATINE PHOSPHOKINASE INCREASED [None]
  - MYALGIA [None]
